FAERS Safety Report 6431985-X (Version None)
Quarter: 2009Q4

REPORT INFORMATION
  Report Type: 
  Country: None (occurrence: None)
  Receive Date: 20091109
  Receipt Date: 20091030
  Transmission Date: 20100525
  Serious: Yes (Other)
  Sender: FDA-Public Use
  Company Number: AU-JNJFOC-20091007045

PATIENT
  Age: 70 Year
  Sex: Female

DRUGS (7)
  1. DURAGESIC-100 [Suspect]
     Indication: BACK PAIN
     Route: 062
  2. SINEMET [Concomitant]
     Route: 065
  3. DIAZEPAM [Concomitant]
     Route: 065
  4. CARTIA XT [Concomitant]
     Route: 065
  5. MOTILIUM [Concomitant]
     Route: 065
  6. PAROXETINE [Concomitant]
     Route: 065
  7. LIPITOR [Concomitant]
     Route: 065

REACTIONS (2)
  - AGITATION [None]
  - FORMICATION [None]
